FAERS Safety Report 7562581-9 (Version None)
Quarter: 2011Q2

REPORT INFORMATION
  Report Type: 
  Country: None (occurrence: None)
  Receive Date: 20110622
  Receipt Date: 20110610
  Transmission Date: 20111010
  Serious: Yes (Hospitalization)
  Sender: FDA-Public Use
  Company Number: SE-SANOFI-AVENTIS-2011SA036767

PATIENT
  Age: 74 Year
  Sex: Male
  Weight: 106 kg

DRUGS (10)
  1. FUROSEMIDE [Concomitant]
  2. BISOPROLOL FUMARATE [Concomitant]
  3. DIGOXIN [Concomitant]
  4. ALLOPURINOL [Concomitant]
  5. CANDESARTAN CILEXETIL [Concomitant]
  6. WARFARIN SODIUM [Concomitant]
     Dosage: 36.2 MG WEEKLY
  7. SPIRONOLACTONE [Concomitant]
  8. DRONEDARONE HCL [Suspect]
     Indication: ATRIAL FIBRILLATION
     Route: 048
     Dates: start: 20110427
  9. ENALAPRIL MALEATE [Concomitant]
  10. SIMVASTATIN [Concomitant]

REACTIONS (1)
  - RENAL FAILURE [None]
